FAERS Safety Report 14689739 (Version 1)
Quarter: 2018Q1

REPORT INFORMATION
  Report Type: Spontaneous
  Country: CA (occurrence: CA)
  Receive Date: 20180328
  Receipt Date: 20180328
  Transmission Date: 20180509
  Serious: Yes (Life-Threatening, Hospitalization, Other)
  Sender: FDA-Public Use
  Company Number: CA-JNJFOC-20180335657

PATIENT
  Age: 70 Year
  Sex: Male
  Weight: 95 kg

DRUGS (6)
  1. IRBESARTAN. [Concomitant]
     Active Substance: IRBESARTAN
     Route: 065
  2. ROSUVASTATIN. [Concomitant]
     Active Substance: ROSUVASTATIN
     Route: 065
  3. SALBUTAMOL [Concomitant]
     Active Substance: ALBUTEROL
     Route: 065
  4. SOTALOL. [Concomitant]
     Active Substance: SOTALOL
     Route: 065
  5. XARELTO [Suspect]
     Active Substance: RIVAROXABAN
     Indication: ATRIAL FIBRILLATION
     Route: 048
  6. SILDENAFIL. [Concomitant]
     Active Substance: SILDENAFIL
     Route: 065

REACTIONS (4)
  - Internal haemorrhage [Unknown]
  - Spinal cord compression [Unknown]
  - Quadriplegia [Unknown]
  - Back pain [Unknown]
